FAERS Safety Report 4851489-5 (Version None)
Quarter: 2005Q4

REPORT INFORMATION
  Report Type: 
  Country: None (occurrence: None)
  Receive Date: 20051212
  Receipt Date: 20051110
  Transmission Date: 20060501
  Serious: Yes (Other)
  Sender: FDA-Public Use
  Company Number: PHFR2005GB03729

PATIENT
  Age: 68 Year
  Sex: Male

DRUGS (5)
  1. ZOMETA [Suspect]
     Indication: MULTIPLE MYELOMA
     Dosage: 4MG EVERY 4 WEEKS
     Route: 042
     Dates: start: 20040401
  2. RAMIPRIL [Concomitant]
     Route: 065
  3. QUININE SULPHATE [Concomitant]
     Route: 065
  4. DEXAMETHASONE [Concomitant]
     Route: 065
  5. PINDOLOL [Concomitant]
     Route: 065

REACTIONS (2)
  - OSTEONECROSIS [None]
  - PAIN IN JAW [None]
